FAERS Safety Report 8205016-5 (Version None)
Quarter: 2012Q1

REPORT INFORMATION
  Report Type: 
  Country: None (occurrence: None)
  Receive Date: 20120309
  Receipt Date: 20120224
  Transmission Date: 20120608
  Serious: Yes (Hospitalization)
  Sender: FDA-Public Use
  Company Number: EU-2012-10080

PATIENT
  Age: 63 Year
  Sex: Male

DRUGS (7)
  1. RANITIDINE HCL [Concomitant]
  2. CILOSTAZOL [Suspect]
     Indication: PERIPHERAL CIRCULATORY FAILURE
     Dosage: 100 MG MILLIGRAM(S), DAILY DOSE, ORAL
     Route: 048
     Dates: start: 20100101, end: 20110509
  3. CILOSTAZOL [Suspect]
     Indication: OFF LABEL USE
     Dosage: 100 MG MILLIGRAM(S), DAILY DOSE, ORAL
     Route: 048
     Dates: start: 20100101, end: 20110509
  4. RAMIPRIL [Concomitant]
  5. ASPIRIN [Concomitant]
  6. AUGMENTINE (AMOXICILLIN SODIUM, CLAVULANATE POTASSIUM) [Concomitant]
  7. SIMVASTATIN [Suspect]

REACTIONS (2)
  - ACUTE PULMONARY OEDEMA [None]
  - ACUTE CORONARY SYNDROME [None]
